FAERS Safety Report 7486518-6 (Version None)
Quarter: 2011Q2

REPORT INFORMATION
  Report Type: 
  Country: None (occurrence: None)
  Receive Date: 20110517
  Receipt Date: 20110425
  Transmission Date: 20111010
  Serious: Yes (Life-Threatening)
  Sender: FDA-Public Use
  Company Number: NO-ASTRAZENECA-2011SE16950

PATIENT
  Age: 21 Year
  Sex: Male

DRUGS (1)
  1. PROPOFOL [Suspect]
     Indication: STATUS EPILEPTICUS
     Route: 042

REACTIONS (1)
  - PROPOFOL INFUSION SYNDROME [None]
